FAERS Safety Report 19785971 (Version 1)
Quarter: 2021Q3

REPORT INFORMATION
  Report Type: Other
  Country: BR (occurrence: BR)
  Receive Date: 20210903
  Receipt Date: 20210903
  Transmission Date: 20211014
  Serious: Yes (Other)
  Sender: FDA-Public Use
  Company Number: BR-ROCHE-2904427

PATIENT
  Age: 73 Year
  Sex: Male

DRUGS (4)
  1. TEICOPLANIN [Concomitant]
     Active Substance: TEICOPLANIN
  2. TOCILIZUMAB. [Suspect]
     Active Substance: TOCILIZUMAB
     Indication: COVID-19
     Dosage: SINGLE DOSE
     Route: 042
  3. MEROPENEM. [Concomitant]
     Active Substance: MEROPENEM
  4. CEFALEXIN [Concomitant]
     Active Substance: CEPHALEXIN

REACTIONS (2)
  - Off label use [Unknown]
  - Anastomotic leak [Recovering/Resolving]
